FAERS Safety Report 7241809 (Version 2)
Quarter: 2014Q2

REPORT INFORMATION
  Report Type: Spontaneous
  Country: US (occurrence: None)
  Receive Date: 20091228
  Receipt Date: 20140528
  Transmission Date: 20141212
  Serious: Yes (Hospitalization, Other)
  Sender: FDA-Public Use
  Company Number: 2009S1008971

PATIENT
  Age: 65 Year
  Sex: Female

DRUGS (11)
  1. FLEET PHOSPHO-SODA ORAL SALINE LAXATIVE, GINGER-LEMON FLAVOR (ORAL SOLUTION) [Suspect]
     Indication: COLONOSCOPY
     Dosage: PO
     Route: 048
     Dates: start: 20061116, end: 20061116
  2. FLEET ENEMA [Suspect]
     Indication: COLONOSCOPY
     Dosage: RTL
     Route: 054
     Dates: start: 200611
  3. HUMIRA (ADALIMUMAB) [Concomitant]
  4. COREG (CRVEDILOL) [Concomitant]
  5. LIPITOR (ATORVASTATIN CALCIUM) [Concomitant]
  6. BENICAR HCT (HYDROCHLOROTHIAZIDE, OLMESARTAN MEDOXOMIL) (TABLET) (HYDROCHLOROTHIAZIDE, OLMESARTAN MEDOXOMIL) [Concomitant]
  7. SINGULAIR (MONTELUKAST SODIUM) TABLET [Concomitant]
  8. ASPIRIN (ACETYLSALICYLIC ACID) [Concomitant]
  9. PRILOSEC (OMEPRAZOLE) [Concomitant]
  10. FOLIC ACID 9FOLIC ACID) [Concomitant]
  11. EVISTA (RALOXIFENE HYDROCHLORIDE) [Concomitant]

REACTIONS (5)
  - Renal failure [None]
  - Depression [None]
  - Gastrooesophageal reflux disease [None]
  - Anaemia [None]
  - Renal transplant [None]
